FAERS Safety Report 6470254-9 (Version None)
Quarter: 2009Q4

REPORT INFORMATION
  Report Type: 
  Country: None (occurrence: None)
  Receive Date: 20091203
  Receipt Date: 20091124
  Transmission Date: 20100525
  Serious: Yes (Other)
  Sender: FDA-Public Use
  Company Number: US-JNJFOC-20091107365

PATIENT
  Sex: Male
  Weight: 205 kg

DRUGS (3)
  1. REMICADE [Suspect]
     Route: 042
     Dates: start: 20090615, end: 20091003
  2. REMICADE [Suspect]
     Route: 042
     Dates: start: 20090615, end: 20091003
  3. REMICADE [Suspect]
     Indication: RHEUMATOID ARTHRITIS
     Route: 042
     Dates: start: 20090615, end: 20091003

REACTIONS (1)
  - SKIN CANCER [None]
